FAERS Safety Report 8329346-1 (Version None)
Quarter: 2012Q2

REPORT INFORMATION
  Report Type: 
  Country: None (occurrence: None)
  Receive Date: 20120502
  Receipt Date: 20110630
  Transmission Date: 20120825
  Serious: No
  Sender: FDA-Public Use
  Company Number: US-ASTRAZENECA-2011SE39343

PATIENT
  Age: 50 Year
  Sex: Female

DRUGS (2)
  1. FASLODEX [Suspect]
     Route: 030
  2. ZOMETA [Concomitant]

REACTIONS (2)
  - INJECTION SITE INJURY [None]
  - INJECTION SITE EXTRAVASATION [None]
